FAERS Safety Report 9343653 (Version 3)
Quarter: 2013Q4

REPORT INFORMATION
  Report Type: Spontaneous
  Country: GB (occurrence: None)
  Receive Date: 20130610
  Receipt Date: 20131029
  Transmission Date: 20140711
  Serious: Yes (Hospitalization, Other)
  Sender: FDA-Public Use
  Company Number: 2013MPI00335

PATIENT
  Age: 30 Year
  Sex: Female

DRUGS (1)
  1. ADCETRIS (BRENTUXIMAB VEDOTIN) INJECTION [Suspect]
     Indication: PRODUCT USED FOR UNKNOWN INDICATION
     Dosage: QCYCLE
     Route: 042
     Dates: start: 20130205

REACTIONS (6)
  - Amnesia [None]
  - Diarrhoea [None]
  - Lethargy [None]
  - Myalgia [None]
  - Hypoaesthesia [None]
  - Mental disorder [None]
